FAERS Safety Report 5783934-5 (Version None)
Quarter: 2008Q2

REPORT INFORMATION
  Report Type: 
  Country: None (occurrence: None)
  Receive Date: 20080605
  Receipt Date: 20080327
  Transmission Date: 20081010
  Serious: No
  Sender: FDA-Public Use
  Company Number: A0717732A

PATIENT
  Sex: Female

DRUGS (1)
  1. ALLI [Suspect]

REACTIONS (6)
  - ASTHENIA [None]
  - EATING DISORDER [None]
  - FATIGUE [None]
  - FOOD CRAVING [None]
  - PAIN [None]
  - PREMENSTRUAL SYNDROME [None]
